FAERS Safety Report 21382206 (Version 5)
Quarter: 2023Q2

REPORT INFORMATION
  Report Type: Spontaneous
  Country: JP (occurrence: JP)
  Receive Date: 20220927
  Receipt Date: 20230620
  Transmission Date: 20230721
  Serious: Yes (Other)
  Sender: FDA-Public Use
  Company Number: JP-MYOVANT SCIENCES GMBH-2022MYSCI0900580

PATIENT
  Age: 45 Year
  Sex: Female

DRUGS (12)
  1. RELUGOLIX [Suspect]
     Active Substance: RELUGOLIX
     Indication: Dysmenorrhoea
     Dosage: 40 MILLIGRAM, QD
     Route: 048
     Dates: start: 20220613, end: 20220907
  2. RELUGOLIX [Suspect]
     Active Substance: RELUGOLIX
     Indication: Uterine leiomyoma
  3. RELUGOLIX [Suspect]
     Active Substance: RELUGOLIX
     Indication: Adenomyosis
  4. RELUGOLIX [Suspect]
     Active Substance: RELUGOLIX
     Indication: Endometriosis
  5. TRESIBA [Concomitant]
     Active Substance: INSULIN DEGLUDEC
     Indication: Diabetes mellitus
     Dosage: 4 INTERNATIONAL UNIT, QD
     Route: 065
     Dates: start: 20220805, end: 20220826
  6. TRESIBA [Concomitant]
     Active Substance: INSULIN DEGLUDEC
     Dosage: 6 INTERNATIONAL UNIT, QD
     Route: 065
     Dates: start: 20220827
  7. AMLODIPINE BESYLATE\IRBESARTAN [Concomitant]
     Active Substance: AMLODIPINE BESYLATE\IRBESARTAN
     Indication: Hypertension
     Dosage: 1 DOSAGE FORM
     Route: 048
  8. BISOPROLOL FUMARATE [Concomitant]
     Active Substance: BISOPROLOL FUMARATE
     Indication: Product used for unknown indication
     Dosage: 2.5 MILLIGRAM, QD
     Route: 048
     Dates: end: 20220822
  9. VASOLAN                            /00014302/ [Concomitant]
     Indication: Product used for unknown indication
     Dosage: 120 MILLIGRAM, QD
     Route: 048
  10. LAFUTIDINE [Concomitant]
     Active Substance: LAFUTIDINE
     Indication: Product used for unknown indication
     Dosage: 20 MILLIGRAM, QD
     Route: 048
  11. PREGABALIN [Concomitant]
     Active Substance: PREGABALIN
     Indication: Product used for unknown indication
     Dosage: 100 MILLIGRAM, QD
     Route: 048
  12. ZOLPIDEM TARTRATE [Concomitant]
     Active Substance: ZOLPIDEM TARTRATE
     Indication: Insomnia
     Dosage: 5 MILLIGRAM, QD
     Route: 048

REACTIONS (1)
  - Prinzmetal angina [Recovering/Resolving]

NARRATIVE: CASE EVENT DATE: 20220601
